FAERS Safety Report 20861191 (Version 1)
Quarter: 2022Q2

REPORT INFORMATION
  Report Type: Spontaneous
  Country: US (occurrence: None)
  Receive Date: 20220520
  Receipt Date: 20220520
  Transmission Date: 20220721
  Serious: No
  Sender: FDA-Public Use
  Company Number: None

PATIENT
  Age: 23 Year
  Sex: Female

DRUGS (1)
  1. DEPO-PROVERA [Suspect]
     Active Substance: MEDROXYPROGESTERONE ACETATE
     Indication: Contraception
     Dosage: OTHER FREQUENCY : Q 3 MONTHS;?
     Route: 058

REACTIONS (3)
  - Product prescribing error [None]
  - Incorrect route of product administration [None]
  - Device computer issue [None]

NARRATIVE: CASE EVENT DATE: 20220516
